FAERS Safety Report 11785872 (Version 1)
Quarter: 2015Q4

REPORT INFORMATION
  Report Type: Spontaneous
  Country: US (occurrence: None)
  Receive Date: 20151125
  Receipt Date: 20151125
  Transmission Date: 20160305
  Serious: No
  Sender: FDA-Public Use
  Company Number: None

PATIENT
  Age: 64 Year
  Sex: Male
  Weight: 97.5 kg

DRUGS (2)
  1. RIBAVIRIN. [Suspect]
     Active Substance: RIBAVIRIN
     Indication: HEPATITIS C
     Dosage: MG BID PO
     Route: 048
     Dates: start: 20150102, end: 20150324
  2. SOFOSBUVIR [Suspect]
     Active Substance: SOFOSBUVIR
     Indication: HEPATITIS C
     Dosage: MG PO
     Route: 048
     Dates: start: 20150102, end: 20150324

REACTIONS (4)
  - Nausea [None]
  - Fatigue [None]
  - Dizziness [None]
  - Vomiting [None]

NARRATIVE: CASE EVENT DATE: 20150130
